FAERS Safety Report 17140906 (Version 1)
Quarter: 2019Q4

REPORT INFORMATION
  Report Type: Spontaneous
  Country: US (occurrence: US)
  Receive Date: 20191211
  Receipt Date: 20191211
  Transmission Date: 20200122
  Serious: No
  Sender: FDA-Public Use
  Company Number: US-AMAG PHARMACEUTICALS, INC.-AMAG201906126

PATIENT
  Age: 53 Year
  Sex: Female
  Weight: 45.4 kg

DRUGS (3)
  1. MESALAMINE. [Concomitant]
     Active Substance: MESALAMINE
     Indication: COLITIS
     Dosage: PRESCRIBED EVERY OTHER NIGHT RECTALLY
     Route: 054
  2. VYLEESI [Suspect]
     Active Substance: BREMELANOTIDE ACETATE
     Indication: LIBIDO DECREASED
     Dosage: UNK
     Route: 058
     Dates: start: 20191111
  3. APRISSO [Concomitant]
     Indication: COLITIS
     Route: 048

REACTIONS (2)
  - Underdose [Unknown]
  - Product administration error [Unknown]

NARRATIVE: CASE EVENT DATE: 20191119
